FAERS Safety Report 8912260 (Version 1)
Quarter: 2012Q4

REPORT INFORMATION
  Report Type: 
  Country: SE (occurrence: SE)
  Receive Date: 20121115
  Receipt Date: 20121115
  Transmission Date: 20130627
  Serious: Yes (Hospitalization, Other)
  Sender: FDA-Public Use
  Company Number: SE-PFIZER INC-2012276672

PATIENT
  Age: 36 Year
  Sex: Female
  Weight: 51 kg

DRUGS (5)
  1. GENOTROPIN [Suspect]
     Indication: BLOOD CORTICOTROPHIN DECREASED
     Dosage: 0.8 mg, 1x/day,7 injections/week.
     Route: 058
     Dates: start: 20050609
  2. FLORINEF [Concomitant]
     Indication: ACTH DECREASED
     Dosage: UNK
     Dates: start: 19900210
  3. CORTISONE ACETATE [Concomitant]
     Indication: ACTH DECREASED
     Dosage: UNK
     Dates: start: 19900210
  4. DHEA [Concomitant]
     Indication: HYPOGONADISM
     Dosage: UNK
     Dates: start: 20090101
  5. LEVOTHYROXINE [Concomitant]
     Indication: HYPOTHYROIDISM
     Dosage: UNK
     Dates: start: 20090101

REACTIONS (1)
  - Abortion [Unknown]
